FAERS Safety Report 16763841 (Version 1)
Quarter: 2019Q3

REPORT INFORMATION
  Report Type: Spontaneous
  Country: CA (occurrence: CA)
  Receive Date: 20190902
  Receipt Date: 20190902
  Transmission Date: 20191005
  Serious: Yes (Life-Threatening)
  Sender: FDA-Public Use
  Company Number: PHHY2019CA203275

PATIENT
  Age: 76 Year
  Sex: Female

DRUGS (1)
  1. RYDAPT [Suspect]
     Active Substance: MIDOSTAURIN
     Indication: SYSTEMIC MASTOCYTOSIS
     Dosage: 100 MG, BID
     Route: 048

REACTIONS (2)
  - Fibrosarcoma [Not Recovered/Not Resolved]
  - Uterine leiomyosarcoma [Not Recovered/Not Resolved]
